FAERS Safety Report 7758551-8 (Version None)
Quarter: 2011Q3

REPORT INFORMATION
  Report Type: 
  Country: None (occurrence: None)
  Receive Date: 20110919
  Receipt Date: 20110906
  Transmission Date: 20111222
  Serious: Yes (Hospitalization, Other)
  Sender: FDA-Public Use
  Company Number: US-ELI_LILLY_AND_COMPANY-US201109001846

PATIENT
  Age: 73 Year
  Sex: Male

DRUGS (6)
  1. HYDRALAZINE HCL [Concomitant]
  2. ZYPREXA [Suspect]
     Indication: BIPOLAR DISORDER
     Dosage: 5 MG, QD
     Dates: start: 20030101
  3. CLONAZEPAM [Concomitant]
     Indication: ANXIETY
  4. BUPROPION HCL [Concomitant]
     Dosage: 150 MG, TID
  5. ZYPREXA [Suspect]
     Dosage: 10 MG, QD
  6. TEMAZEPAM [Concomitant]

REACTIONS (8)
  - PERICARDIAL EFFUSION [None]
  - RENAL FAILURE [None]
  - ATRIAL FIBRILLATION [None]
  - HEPATIC FAILURE [None]
  - VENTRICULAR FIBRILLATION [None]
  - DRUG INEFFECTIVE [None]
  - TACHYPHRENIA [None]
  - CORONARY ARTERY BYPASS [None]
